FAERS Safety Report 9095926 (Version 1)
Quarter: 2013Q1

REPORT INFORMATION
  Report Type: Report from Study
  Country: JP (occurrence: JP)
  Receive Date: 20130219
  Receipt Date: 20130219
  Transmission Date: 20140127
  Serious: Yes (Hospitalization)
  Sender: FDA-Public Use
  Company Number: JP-ACTELION-A-CH2013-79429

PATIENT
  Age: 77 Year
  Sex: Female
  Weight: 51.2 kg

DRUGS (6)
  1. TRACLEER [Suspect]
     Indication: PULMONARY HYPERTENSION
     Dosage: 62.5 MG, BID
     Route: 048
     Dates: start: 20090512, end: 20090526
  2. TRACLEER [Suspect]
     Dosage: 62.5 MG, QD
     Route: 048
     Dates: start: 20090527, end: 20100118
  3. TRACLEER [Suspect]
     Dosage: 125 MG, BID
     Route: 048
     Dates: start: 20100119, end: 20110607
  4. TRACLEER [Suspect]
     Dosage: 62.5 MG, BID
     Route: 048
     Dates: start: 20110608
  5. PROPRANOLOL HYDROCHLORIDE [Suspect]
     Indication: PARKINSON^S DISEASE
     Dosage: 30 MG, QD
     Route: 048
     Dates: start: 20100123, end: 20110415
  6. WARFARIN POTASSIUM [Concomitant]

REACTIONS (7)
  - Hepatic function abnormal [Recovered/Resolved]
  - Oedema peripheral [Recovering/Resolving]
  - Dyspnoea [Recovering/Resolving]
  - Aspartate aminotransferase increased [Recovered/Resolved]
  - Alanine aminotransferase increased [Recovered/Resolved]
  - Gamma-glutamyltransferase increased [Recovered/Resolved]
  - Blood bilirubin increased [Recovered/Resolved]
